FAERS Safety Report 10073286 (Version 2)
Quarter: 2014Q2

REPORT INFORMATION
  Report Type: Spontaneous
  Country: FR (occurrence: FR)
  Receive Date: 20140411
  Receipt Date: 20140424
  Transmission Date: 20141212
  Serious: Yes (Congenital Anomaly, Other)
  Sender: FDA-Public Use
  Company Number: FR-VIIV HEALTHCARE LIMITED-B0981950B

PATIENT
  Sex: Male

DRUGS (2)
  1. COMBIVIR [Suspect]
     Indication: HIV INFECTION
     Route: 064
  2. KALETRA [Suspect]
     Indication: HIV INFECTION
     Route: 064

REACTIONS (4)
  - Low set ears [Unknown]
  - Dysmorphism [Unknown]
  - Bone disorder [Unknown]
  - Foetal exposure during pregnancy [Unknown]
